FAERS Safety Report 6143205-4 (Version None)
Quarter: 2009Q2

REPORT INFORMATION
  Report Type: 
  Country: None (occurrence: None)
  Receive Date: 20090403
  Receipt Date: 20090325
  Transmission Date: 20091009
  Serious: Yes (Hospitalization)
  Sender: FDA-Public Use
  Company Number: NL-BRISTOL-MYERS SQUIBB COMPANY-14057723

PATIENT
  Age: 47 Year
  Sex: Male

DRUGS (2)
  1. ABATACEPT [Suspect]
     Indication: CROHN'S DISEASE
     Route: 042
     Dates: start: 20071211, end: 20080108
  2. PREDNISONE [Concomitant]
     Dates: start: 20071117

REACTIONS (2)
  - ANAL ABSCESS [None]
  - CROHN'S DISEASE [None]
